FAERS Safety Report 25393098 (Version 1)
Quarter: 2025Q2

REPORT INFORMATION
  Report Type: Spontaneous
  Country: GB (occurrence: GB)
  Receive Date: 20250604
  Receipt Date: 20250604
  Transmission Date: 20250716
  Serious: Yes (Other)
  Sender: TEVA
  Company Number: GB-MHRA-TPP35811991C16432420YC1748343464376

PATIENT
  Age: 55 Year
  Sex: Female
  Weight: 67 kg

DRUGS (7)
  1. AMLODIPINE [Suspect]
     Active Substance: AMLODIPINE BESYLATE
     Indication: Ill-defined disorder
     Dosage: 1 TABLET ONCE DAILY TO LOWER BLOOD PRESSURE
     Route: 065
     Dates: start: 20250210
  2. SEA WATER [Concomitant]
     Active Substance: SEA WATER
     Indication: Ill-defined disorder
     Route: 065
     Dates: start: 20240605
  3. LORATADINE [Concomitant]
     Active Substance: LORATADINE
     Indication: Ill-defined disorder
     Dosage: ONE TABLET ONCE DAILY FOR SINUSITIS
     Route: 065
     Dates: start: 20250520
  4. OTOMIZE [Concomitant]
     Indication: Ill-defined disorder
     Route: 065
     Dates: start: 20250401, end: 20250408
  5. LERCANIDIPINE HYDROCHLORIDE [Concomitant]
     Active Substance: LERCANIDIPINE HYDROCHLORIDE
     Indication: Ill-defined disorder
     Dosage: ONE TABLET ONCE DAILY TO REDUCE BLOOD PRESSURE
     Route: 065
     Dates: start: 20250527
  6. FLUTICASONE PROPIONATE [Concomitant]
     Active Substance: FLUTICASONE PROPIONATE
     Indication: Ill-defined disorder
     Dosage: TWO PUFFS ONCE DAILY
     Route: 065
     Dates: start: 20240605
  7. ESTRADIOL [Concomitant]
     Active Substance: ESTRADIOL
     Indication: Ill-defined disorder
     Dosage: APPLY TWICE WEEKLY
     Dates: start: 20230718

REACTIONS (1)
  - Joint swelling [Recovered/Resolved]
